FAERS Safety Report 5066794-X (Version None)
Quarter: 2006Q3

REPORT INFORMATION
  Report Type: 
  Country: None (occurrence: None)
  Receive Date: 20060726
  Receipt Date: 20060714
  Transmission Date: 20061208
  Serious: Yes (Other)
  Sender: FDA-Public Use
  Company Number: 2006064973

PATIENT
  Age: 61 Year
  Sex: Male
  Weight: 59 kg

DRUGS (2)
  1. LYRICA [Suspect]
     Indication: NEUROPATHY
     Dosage: 25 MG , ORAL
     Route: 048
     Dates: start: 20060327, end: 20060515
  2. PLAVIX [Concomitant]

REACTIONS (2)
  - JAW DISORDER [None]
  - OSTEOMA [None]
